FAERS Safety Report 10137741 (Version 1)
Quarter: 2014Q2

REPORT INFORMATION
  Report Type: Spontaneous
  Country: US (occurrence: US)
  Receive Date: 20140429
  Receipt Date: 20140429
  Transmission Date: 20141212
  Serious: Yes (Hospitalization)
  Sender: FDA-Public Use
  Company Number: US-BAYER-2014-059767

PATIENT
  Age: 34 Year
  Sex: Female
  Weight: 126.98 kg

DRUGS (11)
  1. YAZ [Suspect]
     Indication: ORAL CONTRACEPTION
     Dosage: UNK ; DAILY
     Route: 048
  2. DUONEB [Concomitant]
  3. DEXAMETHASONE [Concomitant]
  4. ROCEPHIN [Concomitant]
  5. SOLU-MEDROL [Concomitant]
  6. AUGMENTIN [Concomitant]
  7. ALBUTEROL INHALER [Concomitant]
  8. BISOPROLOL W/HYDROCHLOROTHIAZIDE [Concomitant]
  9. LEVAQUIN [Concomitant]
     Indication: URINARY TRACT INFECTION
  10. ZETIA [Concomitant]
     Indication: HYPERLIPIDAEMIA
  11. POTASSIUM CHLORIDE [Concomitant]
     Dosage: 20 MEQ, UNK

REACTIONS (1)
  - Pulmonary embolism [None]
